FAERS Safety Report 5699171-9 (Version None)
Quarter: 2008Q2

REPORT INFORMATION
  Report Type: 
  Country: None (occurrence: None)
  Receive Date: 20080407
  Receipt Date: 20080407
  Transmission Date: 20081010
  Serious: Yes (Life-Threatening)
  Sender: FDA-Public Use
  Company Number: None

PATIENT
  Age: 26 Year
  Sex: Female
  Weight: 55.3388 kg

DRUGS (2)
  1. PROVIGIL [Suspect]
     Indication: DEPRESSION
     Dosage: 200 MG. ONCE DAILY PO
     Route: 048
     Dates: start: 20071010, end: 20080121
  2. PROVIGIL [Suspect]
     Indication: FATIGUE
     Dosage: 200 MG. ONCE DAILY PO
     Route: 048
     Dates: start: 20071010, end: 20080121

REACTIONS (8)
  - ANXIETY [None]
  - DECREASED APPETITE [None]
  - IRRITABILITY [None]
  - LACERATION [None]
  - NERVOUSNESS [None]
  - SPEECH DISORDER [None]
  - SUICIDE ATTEMPT [None]
  - WEIGHT DECREASED [None]
